FAERS Safety Report 4582567-6 (Version None)
Quarter: 2005Q1

REPORT INFORMATION
  Report Type: 
  Country: None (occurrence: None)
  Receive Date: 20050215
  Receipt Date: 20050202
  Transmission Date: 20050727
  Serious: Yes (Other)
  Sender: FDA-Public Use
  Company Number: 200510922US

PATIENT
  Age: 58 Year
  Sex: 0

DRUGS (1)
  1. NORPRAMIN [Suspect]
     Indication: DEPRESSION
     Route: 048

REACTIONS (2)
  - CONGESTIVE CARDIOMYOPATHY [None]
  - DISORIENTATION [None]
